FAERS Safety Report 19483315 (Version 1)
Quarter: 2021Q3

REPORT INFORMATION
  Report Type: Spontaneous
  Country: CN (occurrence: CN)
  Receive Date: 20210701
  Receipt Date: 20210701
  Transmission Date: 20211014
  Serious: Yes (Other)
  Sender: FDA-Public Use
  Company Number: CN-ASTRAZENECA-2021A573156

PATIENT
  Age: 72 Year
  Sex: Male
  Weight: 65 kg

DRUGS (1)
  1. OSIMERTINIB MESYLATE. [Suspect]
     Active Substance: OSIMERTINIB MESYLATE
     Indication: NEOPLASM MALIGNANT
     Route: 048
     Dates: start: 20210120, end: 20210622

REACTIONS (2)
  - Myelosuppression [Recovering/Resolving]
  - Thrombocytopenia [Unknown]

NARRATIVE: CASE EVENT DATE: 20210621
